FAERS Safety Report 14610368 (Version 2)
Quarter: 2018Q1

REPORT INFORMATION
  Report Type: Spontaneous
  Country: FR (occurrence: FR)
  Receive Date: 20180307
  Receipt Date: 20180316
  Transmission Date: 20180509
  Serious: Yes (Other)
  Sender: FDA-Public Use
  Company Number: FR-TEVA-2018-FR-864066

PATIENT
  Sex: Female

DRUGS (1)
  1. COPAXONE [Suspect]
     Active Substance: GLATIRAMER ACETATE
     Dosage: COPAXONE: 20 MG/ML, STARTED FOR A LONG TIME
     Route: 058

REACTIONS (4)
  - Malaise [Unknown]
  - Contusion [Not Recovered/Not Resolved]
  - Vertigo [Unknown]
  - Anaphylactic shock [Unknown]
